FAERS Safety Report 7099606-3 (Version None)
Quarter: 2010Q4

REPORT INFORMATION
  Report Type: 
  Country: None (occurrence: None)
  Receive Date: 20101112
  Receipt Date: 20101108
  Transmission Date: 20110411
  Serious: Yes (Death, Hospitalization, Disabling, Other)
  Sender: FDA-Public Use
  Company Number: US-ELI_LILLY_AND_COMPANY-US201009005891

PATIENT
  Sex: Male

DRUGS (11)
  1. GEMZAR [Suspect]
     Indication: PANCREATIC CARCINOMA
     Dosage: 1000 MG/M2, /WK EVERY 3 WKS
     Dates: start: 20100910, end: 20100910
  2. AVODART [Concomitant]
     Indication: BENIGN PROSTATIC HYPERPLASIA
     Dosage: 7.5 MG, UNK
  3. LOVENOX [Concomitant]
  4. ATENOLOL [Concomitant]
     Indication: HYPERTENSION
     Dosage: 50 MG, UNK
  5. LEXAPRO [Concomitant]
     Indication: DEPRESSION
     Dosage: 10 MG, UNK
  6. LORAZEPAM [Concomitant]
  7. REGLAN [Concomitant]
     Indication: NAUSEA
  8. PANTOPRAZOLE [Concomitant]
     Indication: GASTROOESOPHAGEAL REFLUX DISEASE
  9. PERCOCET [Concomitant]
  10. MEGACE [Concomitant]
     Indication: APPETITE DISORDER
     Dosage: 40 MG, UNK
  11. IRON [Concomitant]
     Indication: IRON DEFICIENCY
     Dosage: 325 MG, UNK

REACTIONS (6)
  - ABASIA [None]
  - BLOOD CREATININE INCREASED [None]
  - COGWHEEL RIGIDITY [None]
  - MUSCULAR WEAKNESS [None]
  - MYOCARDIAL INFARCTION [None]
  - PAIN IN EXTREMITY [None]
